FAERS Safety Report 24961686 (Version 1)
Quarter: 2025Q1

REPORT INFORMATION
  Report Type: Report from Study
  Country: US (occurrence: US)
  Receive Date: 20250212
  Receipt Date: 20250212
  Transmission Date: 20250408
  Serious: Yes (Hospitalization, Other)
  Sender: TAKEDA
  Company Number: US-TAKEDA-ALL1-2011-02025

PATIENT
  Age: 19 Year
  Sex: Male
  Weight: 63 kg

DRUGS (22)
  1. IDURSULFASE [Suspect]
     Active Substance: IDURSULFASE
     Indication: Mucopolysaccharidosis II
     Dosage: 12 MILLIGRAM, 1/WEEK
     Dates: start: 20091203
  2. IDURSULFASE [Suspect]
     Active Substance: IDURSULFASE
     Dosage: 36 MILLIGRAM, 1/WEEK
     Dates: start: 20250108
  3. ACETAMINOPHEN [Concomitant]
     Active Substance: ACETAMINOPHEN
  4. EPINEPHRINE [Concomitant]
     Active Substance: EPINEPHRINE
  5. SODIUM CHLORIDE [Concomitant]
     Active Substance: SODIUM CHLORIDE
  6. DOCUSATE SODIUM [Concomitant]
     Active Substance: DOCUSATE SODIUM
  7. IBUPROFEN [Concomitant]
     Active Substance: IBUPROFEN
  8. FLUOXETINE HYDROCHLORIDE [Concomitant]
     Active Substance: FLUOXETINE HYDROCHLORIDE
  9. HYDROXYZINE HYDROCHLORIDE [Concomitant]
     Active Substance: HYDROXYZINE HYDROCHLORIDE
  10. HEPARIN [Concomitant]
     Active Substance: HEPARIN SODIUM
  11. SODIUM CHLORIDE [Concomitant]
     Active Substance: SODIUM CHLORIDE
  12. DIPHENHYDRAMINE HYDROCHLORIDE [Concomitant]
     Active Substance: DIPHENHYDRAMINE HYDROCHLORIDE
  13. ALBUTEROL SULFATE [Concomitant]
     Active Substance: ALBUTEROL SULFATE
  14. LORATADINE [Concomitant]
     Active Substance: LORATADINE
  15. CONCERTA [Concomitant]
     Active Substance: METHYLPHENIDATE HYDROCHLORIDE
  16. OXYGEN [Concomitant]
     Active Substance: OXYGEN
  17. HEPARIN SODIUM [Concomitant]
     Active Substance: HEPARIN SODIUM
  18. Lmx [Concomitant]
  19. SOLU-MEDROL [Concomitant]
     Active Substance: METHYLPREDNISOLONE SODIUM SUCCINATE
  20. Centrum adults [Concomitant]
  21. SENNA [Concomitant]
     Active Substance: SENNOSIDES
  22. MELATONIN [Concomitant]
     Active Substance: MELATONIN

REACTIONS (2)
  - Laryngeal stenosis [Unknown]
  - Circumstance or information capable of leading to medication error [Unknown]

NARRATIVE: CASE EVENT DATE: 20250205
